FAERS Safety Report 7950143-0 (Version None)
Quarter: 2011Q4

REPORT INFORMATION
  Report Type: 
  Country: None (occurrence: None)
  Receive Date: 20111130
  Receipt Date: 20111125
  Transmission Date: 20120403
  Serious: No
  Sender: FDA-Public Use
  Company Number: JP-BAYER-2011-109977

PATIENT
  Age: 80 Year
  Sex: Male
  Weight: 48 kg

DRUGS (9)
  1. ZYRTEC [Concomitant]
     Indication: RHINITIS ALLERGIC
     Dosage: 10 MG, UNK
     Route: 048
  2. GASLON [Concomitant]
     Indication: GASTRITIS
     Dosage: 4 MG, UNK
     Route: 048
  3. LANSOPRAZOLE [Concomitant]
     Indication: GASTRITIS
     Dosage: 15 MG, UNK
     Route: 048
  4. DISOPYRAMIDE PHOSPHATE [Concomitant]
     Indication: ARRHYTHMIA
     Dosage: 300 MG, UNK
     Route: 048
  5. URSO 250 [Concomitant]
     Indication: HEPATITIS
     Dosage: 300 MG, UNK
     Route: 048
     Dates: start: 20110909
  6. SALOBEL [Concomitant]
     Indication: HYPERURICAEMIA
     Dosage: 200 MG, UNK
     Route: 048
     Dates: start: 20110909
  7. NEXAVAR [Suspect]
     Indication: HEPATIC NEOPLASM MALIGNANT
     Dosage: 400 MG, QD
     Route: 048
     Dates: start: 20111026, end: 20111101
  8. TAMSULOSIN HCL [Concomitant]
     Indication: BENIGN PROSTATIC HYPERPLASIA
     Dosage: 0.2 MG, UNK
     Route: 048
  9. LIVACT [Concomitant]
     Dosage: 12.45 G, UNK
     Route: 048
     Dates: start: 20110909

REACTIONS (4)
  - ALANINE AMINOTRANSFERASE INCREASED [None]
  - ASPARTATE AMINOTRANSFERASE INCREASED [None]
  - LIVER DISORDER [None]
  - PLEURISY [None]
